FAERS Safety Report 25368627 (Version 1)
Quarter: 2025Q2

REPORT INFORMATION
  Report Type: Spontaneous
  Country: RU (occurrence: RU)
  Receive Date: 20250528
  Receipt Date: 20250528
  Transmission Date: 20250716
  Serious: Yes (Other)
  Sender: UCB
  Company Number: RU-UCBSA-2025027952

PATIENT
  Age: 9 Year
  Sex: Female

DRUGS (5)
  1. KEPPRA [Suspect]
     Active Substance: LEVETIRACETAM
     Indication: Epilepsy
     Dosage: 125 MILLIGRAM, 2X/DAY (BID), (125 IN MORNING AND 125 IN EVENING)
     Dates: start: 202409
  2. KEPPRA [Suspect]
     Active Substance: LEVETIRACETAM
     Dosage: 250 MILLIGRAM, 2X/DAY (BID), (250 IN MORNING AND 250 IN EVENING)
     Dates: start: 20241205
  3. KEPPRA [Suspect]
     Active Substance: LEVETIRACETAM
     Dosage: 325 MILLIGRAM, 2X/DAY (BID, (325 IN MORNING AND 325 IN EVENING)
     Dates: start: 20250131
  4. KEPPRA [Suspect]
     Active Substance: LEVETIRACETAM
     Dosage: 500 MILLIGRAM, 2X/DAY (BID), (500 IN MORNING AND 500 IN EVENING)
  5. KEPPRA [Suspect]
     Active Substance: LEVETIRACETAM
     Dosage: 650 MILLIGRAM, 2X/DAY (BID), (650 MG IN MORNING AND 650 MG IN EVENING)
     Dates: start: 20250430

REACTIONS (3)
  - Seizure [Not Recovered/Not Resolved]
  - Drug ineffective [Unknown]
  - Off label use [Unknown]

NARRATIVE: CASE EVENT DATE: 20241205
